FAERS Safety Report 11167186 (Version 1)
Quarter: 2015Q2

REPORT INFORMATION
  Report Type: Spontaneous
  Country: PR (occurrence: PR)
  Receive Date: 20150605
  Receipt Date: 20150605
  Transmission Date: 20150821
  Serious: No
  Sender: FDA-Public Use
  Company Number: PR-BAYER-2015-290406

PATIENT
  Age: 77 Year
  Sex: Male

DRUGS (1)
  1. NEXAVAR [Suspect]
     Active Substance: SORAFENIB
     Indication: RENAL CELL CARCINOMA
     Dosage: 1200 MG DAILY DOSE, 4 IN THE AM AND 2 AT NIGHT
     Route: 048
     Dates: start: 201310, end: 20131217

REACTIONS (4)
  - Dry skin [Recovered/Resolved]
  - Laceration [Recovered/Resolved]
  - Off label use [None]
  - Skin exfoliation [Recovered/Resolved]

NARRATIVE: CASE EVENT DATE: 20131217
